FAERS Safety Report 20383488 (Version 1)
Quarter: 2022Q1

REPORT INFORMATION
  Report Type: Spontaneous
  Country: EE (occurrence: EE)
  Receive Date: 20220127
  Receipt Date: 20220127
  Transmission Date: 20220424
  Serious: Yes (Other)
  Sender: FDA-Public Use
  Company Number: ALC2021EE006925

PATIENT

DRUGS (6)
  1. FLUORESCEIN SODIUM [Suspect]
     Active Substance: FLUORESCEIN SODIUM
     Indication: Product used for unknown indication
     Dosage: 2.5 ML (FOOTAGE OF FAG IMAGES FROM THE FUNDUS WITHIN 10 MINUTES)
     Route: 042
     Dates: start: 20211111
  2. BROLUCIZUMAB [Suspect]
     Active Substance: BROLUCIZUMAB
     Indication: Neovascular age-related macular degeneration
     Dosage: UNK
     Route: 065
     Dates: start: 20210723
  3. BROLUCIZUMAB [Suspect]
     Active Substance: BROLUCIZUMAB
     Dosage: 0.05 ML, QMO
     Route: 047
     Dates: start: 20211001
  4. BROLUCIZUMAB [Suspect]
     Active Substance: BROLUCIZUMAB
     Dosage: UNK
     Route: 065
     Dates: start: 20210824
  5. CYCLOGYL [Concomitant]
     Active Substance: CYCLOPENTOLATE HYDROCHLORIDE
     Indication: Product used for unknown indication
     Dosage: INSTILLED INTO BOTH EYES (GTT)
     Route: 065
     Dates: start: 20211111
  6. DEXAMETHASONE [Concomitant]
     Active Substance: DEXAMETHASONE
     Indication: Product used for unknown indication
     Dosage: 4 MG (4 TBL) (TAKES 1 TBL TODAY, TOMORROW BEFORE THE TRIAL ONE AND THEN AFTER)
     Route: 065
     Dates: start: 20211110

REACTIONS (2)
  - Retinal artery occlusion [Unknown]
  - Pruritus [Unknown]

NARRATIVE: CASE EVENT DATE: 20211110
